FAERS Safety Report 13532606 (Version 1)
Quarter: 2017Q2

REPORT INFORMATION
  Report Type: Spontaneous
  Country: US (occurrence: US)
  Receive Date: 20170510
  Receipt Date: 20170510
  Transmission Date: 20170830
  Serious: No
  Sender: FDA-Public Use
  Company Number: US-BAYER-2017-087916

PATIENT
  Age: 17 Year
  Sex: Male

DRUGS (1)
  1. GADAVIST [Suspect]
     Active Substance: GADOBUTROL
     Indication: NUCLEAR MAGNETIC RESONANCE IMAGING BRAIN
     Dosage: 1 DF, ONCE
     Route: 042
     Dates: start: 20170506, end: 20170506

REACTIONS (6)
  - Urticaria [None]
  - Dysphagia [None]
  - Sneezing [None]
  - Eye pruritus [None]
  - Throat tightness [None]
  - Erythema [None]

NARRATIVE: CASE EVENT DATE: 20170506
